FAERS Safety Report 7978277-5 (Version None)
Quarter: 2011Q4

REPORT INFORMATION
  Report Type: 
  Country: None (occurrence: None)
  Receive Date: 20111214
  Receipt Date: 20111201
  Transmission Date: 20120403
  Serious: Yes (Hospitalization)
  Sender: FDA-Public Use
  Company Number: IE-PFIZER INC-2011284213

PATIENT
  Age: 49 Year
  Sex: Female
  Weight: 61.5 kg

DRUGS (2)
  1. PARACETAMOL [Concomitant]
     Indication: ANALGESIC THERAPY
     Dosage: 1 G, AS NEEDED
     Route: 048
  2. CRIZOTINIB [Suspect]
     Indication: SMALL CELL LUNG CANCER METASTATIC
     Dosage: 250 MG, 2X/DAY
     Route: 048
     Dates: start: 20111012

REACTIONS (2)
  - PLEURAL EFFUSION [None]
  - PERICARDIAL EFFUSION [None]
